FAERS Safety Report 6299387-7 (Version None)
Quarter: 2009Q3

REPORT INFORMATION
  Report Type: 
  Country: None (occurrence: None)
  Receive Date: 20090806
  Receipt Date: 20090729
  Transmission Date: 20100115
  Serious: Yes (Hospitalization)
  Sender: FDA-Public Use
  Company Number: FR-PFIZER INC-2009247063

PATIENT
  Age: 66 Year

DRUGS (6)
  1. ALDACTONE [Suspect]
     Indication: HYPERTENSION
     Dosage: 25 MG, 1X/DAY
     Route: 048
     Dates: start: 20071001, end: 20090518
  2. GLUCOPHAGE [Concomitant]
     Dosage: UNK
     Dates: start: 20071001
  3. LANTUS [Concomitant]
     Dosage: UNK
     Dates: start: 20071001
  4. APROVEL [Concomitant]
     Dosage: UNK
     Dates: start: 20071001
  5. SOTALOL [Concomitant]
     Dosage: UNK
     Dates: start: 20071001
  6. EUPANTOL [Concomitant]
     Dosage: UNK
     Dates: start: 20071001

REACTIONS (1)
  - PEMPHIGOID [None]
